FAERS Safety Report 8805557 (Version 1)
Quarter: 2012Q4

REPORT INFORMATION
  Report Type: 
  Country: JP (occurrence: JP)
  Receive Date: 20120924
  Receipt Date: 20120924
  Transmission Date: 20130627
  Serious: Yes (Other)
  Sender: FDA-Public Use
  Company Number: JP-ROCHE-1132370

PATIENT
  Age: 73 Year
  Sex: Male

DRUGS (1)
  1. XELODA [Suspect]
     Indication: LARGE INTESTINE CARCINOMA
     Dosage: Dosage is uncertain.
     Route: 048
     Dates: end: 20111007

REACTIONS (5)
  - Prostate cancer [Unknown]
  - Musculoskeletal stiffness [Unknown]
  - Blood pressure [Unknown]
  - Diarrhoea [Unknown]
  - Herpes zoster [Unknown]
